FAERS Safety Report 4736642-3 (Version None)
Quarter: 2005Q3

REPORT INFORMATION
  Report Type: 
  Country: None (occurrence: None)
  Receive Date: 20050808
  Receipt Date: 20050801
  Transmission Date: 20060218
  Serious: Yes (Other)
  Sender: FDA-Public Use
  Company Number: 2005GB01491

PATIENT
  Age: 69 Year
  Sex: Male
  Weight: 82 kg

DRUGS (5)
  1. ROSUVASTATIN [Suspect]
     Indication: CARDIAC FAILURE CONGESTIVE
     Route: 048
     Dates: start: 20050623, end: 20050629
  2. ATORVASTATIN CALCIUM [Concomitant]
     Route: 048
  3. ATENOLOL [Concomitant]
     Route: 065
     Dates: start: 20030101
  4. CLOPIDOGREL BISULFATE [Concomitant]
     Route: 065
     Dates: start: 20040518
  5. ALFUZOSIN [Concomitant]
     Route: 065
     Dates: start: 20030101

REACTIONS (3)
  - ERYTHEMA [None]
  - PRURITUS [None]
  - SWELLING [None]
